FAERS Safety Report 4650484-9 (Version None)
Quarter: 2005Q2

REPORT INFORMATION
  Report Type: 
  Country: None (occurrence: None)
  Receive Date: 20050429
  Receipt Date: 20050413
  Transmission Date: 20051028
  Serious: Yes (Hospitalization)
  Sender: FDA-Public Use
  Company Number: 800356

PATIENT
  Age: 55 Year
  Sex: Female

DRUGS (1)
  1. DIANEAL [Suspect]
     Indication: PERITONEAL DIALYSIS
     Dosage: INTRAPERITONEAL
     Route: 033
     Dates: end: 20040510

REACTIONS (3)
  - CLOSTRIDIUM COLITIS [None]
  - PERITONITIS [None]
  - WHITE BLOOD CELL COUNT DECREASED [None]
